FAERS Safety Report 6356820-X (Version None)
Quarter: 2009Q3

REPORT INFORMATION
  Report Type: 
  Country: None (occurrence: None)
  Receive Date: 20090911
  Receipt Date: 20090911
  Transmission Date: 20100115
  Serious: Yes (Disabling)
  Sender: FDA-Public Use
  Company Number: None

PATIENT
  Sex: Female
  Weight: 72.5755 kg

DRUGS (1)
  1. ZICAM ; NASAL GEL ; ZICAM LLC PHOENIX, AZ 85011 [Suspect]
     Indication: NASOPHARYNGITIS
     Dosage: 1 DOSE EACH NOSTRIL 2-3 TIMES-48HRS NASAL
     Route: 045
     Dates: start: 20060701, end: 20090801

REACTIONS (2)
  - ANOSMIA [None]
  - DYSGEUSIA [None]
